FAERS Safety Report 5008092-6 (Version None)
Quarter: 2006Q2

REPORT INFORMATION
  Report Type: 
  Country: None (occurrence: None)
  Receive Date: 20060517
  Receipt Date: 20060510
  Transmission Date: 20061013
  Serious: Yes (Death, Other)
  Sender: FDA-Public Use
  Company Number: B0423798A

PATIENT
  Age: 42 Year
  Sex: Female

DRUGS (2)
  1. EPIVIR [Suspect]
     Indication: HEPATITIS D
  2. INTRON A [Suspect]
     Indication: HEPATITIS D
     Dosage: 10 MILLIUNIT / THREE TIMES PER WEEK

REACTIONS (1)
  - HEPATIC FAILURE [None]
